FAERS Safety Report 10289673 (Version 1)
Quarter: 2014Q3

REPORT INFORMATION
  Report Type: Spontaneous
  Country: US (occurrence: None)
  Receive Date: 20140707
  Receipt Date: 20140707
  Transmission Date: 20150326
  Serious: Yes (Hospitalization)
  Sender: FDA-Public Use
  Company Number: None

PATIENT
  Age: 25 Year
  Sex: Female

DRUGS (1)
  1. MINOCYCLINE [Suspect]
     Active Substance: MINOCYCLINE\MINOCYCLINE HYDROCHLORIDE
     Indication: PAPILLOMA
     Dosage: 2 PILLS/DAY TWICE DAILY
     Route: 048
     Dates: start: 20140607, end: 20140614

REACTIONS (9)
  - Dehydration [None]
  - Back pain [None]
  - Neck pain [None]
  - Fatigue [None]
  - Nausea [None]
  - Headache [None]
  - Hyperhidrosis [None]
  - Pain in extremity [None]
  - Hypotension [None]

NARRATIVE: CASE EVENT DATE: 20140615
